FAERS Safety Report 19037234 (Version 3)
Quarter: 2021Q2

REPORT INFORMATION
  Report Type: Spontaneous
  Country: CH (occurrence: CH)
  Receive Date: 20210322
  Receipt Date: 20210420
  Transmission Date: 20210717
  Serious: No
  Sender: FDA-Public Use
  Company Number: CH-JNJFOC-20210315800

PATIENT

DRUGS (6)
  1. TREVICTA [Suspect]
     Active Substance: PALIPERIDONE PALMITATE
  2. TREVICTA [Suspect]
     Active Substance: PALIPERIDONE PALMITATE
  3. TREVICTA [Suspect]
     Active Substance: PALIPERIDONE PALMITATE
  4. TREVICTA [Suspect]
     Active Substance: PALIPERIDONE PALMITATE
     Indication: PRODUCT USED FOR UNKNOWN INDICATION
     Route: 030
  5. TREVICTA [Suspect]
     Active Substance: PALIPERIDONE PALMITATE
  6. TREVICTA [Suspect]
     Active Substance: PALIPERIDONE PALMITATE

REACTIONS (2)
  - Syringe issue [Unknown]
  - Underdose [Unknown]
